FAERS Safety Report 8061966-4 (Version None)
Quarter: 2012Q1

REPORT INFORMATION
  Report Type: 
  Country: None (occurrence: None)
  Receive Date: 20120118
  Receipt Date: 20120109
  Transmission Date: 20120608
  Serious: Yes (Death)
  Sender: FDA-Public Use
  Company Number: JPI-P-002762

PATIENT
  Age: 50 Year
  Sex: Female
  Weight: 80.7403 kg

DRUGS (13)
  1. ATORVASTATIN [Concomitant]
  2. CLONIDINE [Concomitant]
  3. ALPRAZOLAM [Concomitant]
  4. TOPIRAMATE [Concomitant]
  5. ASPIRIN [Concomitant]
  6. OLANZAPINE [Concomitant]
  7. XYREM [Suspect]
     Indication: INSOMNIA
     Dosage: SEE IMAGE
     Route: 048
     Dates: start: 20070101, end: 20070101
  8. XYREM [Suspect]
     Indication: INSOMNIA
     Dosage: SEE IMAGE
     Route: 048
     Dates: start: 20070101
  9. XYREM [Suspect]
     Indication: INSOMNIA
     Dosage: SEE IMAGE
     Route: 048
     Dates: start: 20070101
  10. XYREM [Suspect]
     Indication: INSOMNIA
     Dosage: SEE IMAGE
     Route: 048
     Dates: start: 20070201, end: 20070101
  11. PANTOPRAZOLE [Concomitant]
  12. LEVOTHYROXINE SODIUM [Concomitant]
  13. VENLAFAXINE [Concomitant]

REACTIONS (2)
  - HYPERLIPIDAEMIA [None]
  - ARRHYTHMIA [None]
